FAERS Safety Report 11323158 (Version 1)
Quarter: 2015Q3

REPORT INFORMATION
  Report Type: Report from Study
  Country: MX (occurrence: MX)
  Receive Date: 20150730
  Receipt Date: 20150730
  Transmission Date: 20151125
  Serious: Yes (Hospitalization)
  Sender: FDA-Public Use
  Company Number: PHHY2015MX087580

PATIENT
  Sex: Male

DRUGS (5)
  1. STALEVO [Suspect]
     Active Substance: CARBIDOPA\ENTACAPONE\LEVODOPA
     Indication: PARKINSON^S DISEASE
     Dosage: 1 DF, TID (100, IN THE MORNING, NOON AND AT NIGHT)
     Route: 065
     Dates: start: 2009
  2. STALEVO [Suspect]
     Active Substance: CARBIDOPA\ENTACAPONE\LEVODOPA
     Dosage: AT 7:30, 1 OF 200/50/200, AT 11:00 AM, 1 OF 100,  AT 3:30, 1 OF 200/50/200, AT 7:30, 1 OF 100
     Route: 065
  3. KINESTREL [Concomitant]
     Indication: PARKINSON^S DISEASE
     Route: 065
  4. PRAMIPEXOLE. [Concomitant]
     Active Substance: PRAMIPEXOLE
     Indication: PARKINSON^S DISEASE
     Route: 065
  5. GAVINDO [Concomitant]
     Indication: NERVOUS SYSTEM DISORDER
     Route: 065

REACTIONS (3)
  - Infected skin ulcer [Not Recovered/Not Resolved]
  - Abasia [Not Recovered/Not Resolved]
  - Brain neoplasm [Not Recovered/Not Resolved]

NARRATIVE: CASE EVENT DATE: 2015
